FAERS Safety Report 8204829-3 (Version None)
Quarter: 2012Q1

REPORT INFORMATION
  Report Type: 
  Country: None (occurrence: None)
  Receive Date: 20120313
  Receipt Date: 20120301
  Transmission Date: 20120608
  Serious: Yes (Death)
  Sender: FDA-Public Use
  Company Number: JP-FRI-1000023496

PATIENT
  Sex: Male
  Weight: 50 kg

DRUGS (20)
  1. MEMANTINE [Suspect]
     Dosage: 10 MG
     Route: 048
     Dates: start: 20110701, end: 20110720
  2. MEMANTINE [Suspect]
     Dosage: 20 MG
     Route: 048
     Dates: start: 20110728, end: 20110831
  3. ARICEPT [Concomitant]
     Indication: DEMENTIA ALZHEIMER'S TYPE
     Dosage: 3 MG
     Route: 048
     Dates: start: 20110421
  4. GRAMALIL [Concomitant]
     Indication: DELIRIUM
     Dosage: 450 MG
     Dates: start: 20110512
  5. STAYBLA [Concomitant]
     Indication: HYPERTONIC BLADDER
     Dosage: 0.1 MG - 0.2 MG
     Route: 048
     Dates: start: 20100916
  6. NORVASC [Concomitant]
     Indication: HYPERTENSION
     Dosage: 10 MG
     Route: 048
     Dates: start: 20100330
  7. ARICEPT [Concomitant]
     Dosage: 5 MG
     Route: 048
  8. LEVOFLOXACIN [Concomitant]
     Indication: CONJUNCTIVITIS
     Route: 047
     Dates: start: 20110825
  9. MEMANTINE [Suspect]
     Indication: DEMENTIA ALZHEIMER'S TYPE
     Dosage: 5 MG
     Route: 048
     Dates: start: 20110707, end: 20110701
  10. ZOLPIDEM [Suspect]
     Indication: INSOMNIA
     Dosage: 10 MG
     Route: 048
     Dates: start: 20110825
  11. HARNAL D [Concomitant]
     Indication: BENIGN PROSTATIC HYPERPLASIA
     Dosage: 0.4 MG
     Dates: start: 20100708
  12. DORAL [Suspect]
     Indication: INSOMNIA
     Dosage: 7.5 MG
     Route: 048
     Dates: start: 20110811, end: 20110824
  13. EPLERENONE [Concomitant]
     Indication: HYPERTENSION
     Dosage: 100 MG
     Route: 048
     Dates: start: 20100624
  14. PLAVIX [Concomitant]
     Indication: LACUNAR INFARCTION
     Dosage: 75 MG
     Route: 048
     Dates: start: 20100513
  15. OPALMON [Concomitant]
     Indication: THROMBOANGIITIS OBLITERANS
     Dosage: 90 MCG
     Dates: start: 20101018
  16. YOKUKAN-SAN [Concomitant]
     Indication: NEUROSIS
     Dosage: 9 DF
     Route: 048
     Dates: start: 20110120
  17. MEMANTINE [Suspect]
     Dosage: 15 MG
     Route: 048
     Dates: start: 20110721, end: 20110727
  18. OLMESARTAN MEDOXOMIL [Concomitant]
     Indication: HYPERTENSION
     Dosage: 40 MG
     Route: 048
     Dates: start: 20100527
  19. DILTIAZEM HCL [Concomitant]
     Dosage: 270 MG
     Route: 048
     Dates: start: 20101216
  20. DORAL [Suspect]
     Dosage: 0.5 DF
     Route: 048
     Dates: start: 20110825

REACTIONS (4)
  - NEAR DROWNING [None]
  - SOMNOLENCE [None]
  - INSOMNIA [None]
  - RESTLESSNESS [None]
